FAERS Safety Report 5211790-2 (Version None)
Quarter: 2007Q1

REPORT INFORMATION
  Report Type: 
  Country: None (occurrence: None)
  Receive Date: 20070118
  Receipt Date: 20070108
  Transmission Date: 20070707
  Serious: Yes (Hospitalization)
  Sender: FDA-Public Use
  Company Number: US-ROCHE-477451

PATIENT
  Age: 37 Year
  Sex: Female

DRUGS (4)
  1. CAPECITABINE [Suspect]
     Dosage: PATIENT RECEIVED 2000MG IN THE MORNING AND 1500MG IN THE EVENING ON DAYS 1-14 EVERY 21 DAYS.
     Route: 048
     Dates: start: 20061123, end: 20061205
  2. CAPECITABINE [Suspect]
     Dosage: PATIENT RESUMED TREATMENT WITH A 50% DOSE REDUCTION.
     Route: 048
     Dates: start: 20061221
  3. LAPATINIB [Suspect]
     Route: 048
     Dates: start: 20061123, end: 20061205
  4. LAPATINIB [Suspect]
     Route: 048
     Dates: start: 20061215

REACTIONS (3)
  - DIARRHOEA [None]
  - MUCOSAL INFLAMMATION [None]
  - PALMAR-PLANTAR ERYTHRODYSAESTHESIA SYNDROME [None]
